FAERS Safety Report 8596142-X (Version None)
Quarter: 2012Q3

REPORT INFORMATION
  Report Type: 
  Country: None (occurrence: None)
  Receive Date: 20120801
  Receipt Date: 20120719
  Transmission Date: 20120928
  Serious: Yes (Other)
  Sender: FDA-Public Use
  Company Number: JP-2012-15604

PATIENT
  Age: 72 Year
  Sex: Female
  Weight: 52.9 kg

DRUGS (15)
  1. ROCEPHIN [Concomitant]
  2. NEXIUM [Concomitant]
  3. HANP (CARPERITIDE) INJECTION [Suspect]
     Indication: CARDIAC FAILURE CONGESTIVE
     Dosage: 2000 MCG, DAILY DOSE, INTRAVENOUS
     Route: 042
     Dates: start: 20120530, end: 20120604
  4. NAUZELIN (DOMPERIDONE) [Concomitant]
  5. AROMASIN [Concomitant]
  6. SAMSCA [Suspect]
     Indication: FLUID RETENTION
     Dosage: 7.5 MG MILLIGRAM(S), QAM, ORAL, 15 MG MILLIGRAM(S) QAM, ORAL
     Route: 048
     Dates: start: 20120601
  7. SAMSCA [Suspect]
     Indication: FLUID RETENTION
     Dosage: 7.5 MG MILLIGRAM(S), QAM, ORAL, 15 MG MILLIGRAM(S) QAM, ORAL
     Route: 048
     Dates: start: 20120531, end: 20120531
  8. HISINALO (GLUCOSE, POTASSIUM CHLORIDE, SODIUM LACTATE) [Concomitant]
  9. LASIX [Suspect]
     Indication: CARDIAC FAILURE CONGESTIVE
     Dosage: 60 MG MILLIGRAM(S), DAILY DOSE, INTRAVENOUS
     Route: 042
     Dates: start: 20120527, end: 20120608
  10. OSTELUC (ETODOLAC) [Concomitant]
  11. SOLITA-T1 (GLUCOSE, SODIUM CHLORIDE, SODIUM LACTATE) [Concomitant]
  12. WARFARIN SODIUM [Concomitant]
  13. LASIX [Suspect]
     Indication: CARDIAC FAILURE CONGESTIVE
     Dosage: 40 MG MILLIGRAM(S), DAILY DOSE, ORAL
     Route: 048
  14. NORVASC [Concomitant]
  15. OXYCONTIN [Concomitant]

REACTIONS (4)
  - BLOOD UREA INCREASED [None]
  - PNEUMONIA [None]
  - THIRST [None]
  - HAEMOGLOBIN DECREASED [None]
